FAERS Safety Report 24777413 (Version 1)
Quarter: 2024Q4

REPORT INFORMATION
  Report Type: Spontaneous
  Country: CA (occurrence: CA)
  Receive Date: 20241226
  Receipt Date: 20241226
  Transmission Date: 20250115
  Serious: Yes (Other)
  Sender: PFIZER
  Company Number: CA-PFIZER INC-202400080854

PATIENT
  Age: 78 Year
  Sex: Female

DRUGS (2)
  1. RUXIENCE [Suspect]
     Active Substance: RITUXIMAB-PVVR
     Indication: Rheumatoid arthritis
     Dosage: 1000 MG, (DAY 1 AND DAY 15)
     Route: 042
     Dates: start: 20230828, end: 20230911
  2. RUXIENCE [Suspect]
     Active Substance: RITUXIMAB-PVVR
     Dosage: 1000 MG, SINGLE (ONCE)
     Route: 042
     Dates: start: 20240502, end: 20240502

REACTIONS (6)
  - Pulmonary oedema [Unknown]
  - Atypical pneumonia [Unknown]
  - Rhinorrhoea [Unknown]
  - Cough [Unknown]
  - Off label use [Unknown]
  - Off label use [Unknown]

NARRATIVE: CASE EVENT DATE: 20240101
